FAERS Safety Report 15059313 (Version 1)
Quarter: 2018Q2

REPORT INFORMATION
  Report Type: Spontaneous
  Country: US (occurrence: US)
  Receive Date: 20180605
  Receipt Date: 20180605
  Transmission Date: 20180711
  Serious: Yes (Disabling)
  Sender: FDA-Public Use
  Company Number: None

PATIENT
  Age: 52 Year
  Sex: Female
  Weight: 69.75 kg

DRUGS (14)
  1. BIODENTICAL HORMONES (PROGESTERONE) [Concomitant]
  2. 7 KETO DHEA [Concomitant]
  3. VITAMIN C [Concomitant]
     Active Substance: ASCORBIC ACID
  4. CLARITIN [Concomitant]
     Active Substance: LORATADINE
  5. IRON [Concomitant]
     Active Substance: IRON
  6. ADVAIR HFA [Concomitant]
     Active Substance: FLUTICASONE PROPIONATE\SALMETEROL XINAFOATE
  7. STELARA [Suspect]
     Active Substance: USTEKINUMAB
     Indication: CROHN^S DISEASE
     Dosage: ?          QUANTITY:1 INJECTION(S);OTHER FREQUENCY:1X EVERY TWO MONTH;?
     Route: 058
     Dates: start: 20180305
  8. TESTOSTERONE CREAM [Concomitant]
     Active Substance: TESTOSTERONE
  9. LIALDA (MESALAMINE) [Concomitant]
  10. FISH OIL [Concomitant]
     Active Substance: FISH OIL
  11. CELEBREX [Concomitant]
     Active Substance: CELECOXIB
  12. TURMERIDC [Concomitant]
  13. VITAMIN D [Concomitant]
     Active Substance: CHOLECALCIFEROL
  14. VITAMIN B12 [Concomitant]
     Active Substance: CYANOCOBALAMIN

REACTIONS (1)
  - Urticaria [None]

NARRATIVE: CASE EVENT DATE: 20180305
